FAERS Safety Report 8188082-5 (Version None)
Quarter: 2012Q1

REPORT INFORMATION
  Report Type: 
  Country: None (occurrence: None)
  Receive Date: 20120306
  Receipt Date: 20120305
  Transmission Date: 20120608
  Serious: No
  Sender: FDA-Public Use
  Company Number: US-PFIZER INC-2012058906

PATIENT
  Sex: Female
  Weight: 55.329 kg

DRUGS (2)
  1. SERTRALINE HYDROCHLORIDE [Suspect]
     Indication: DEPRESSION
     Dosage: 100 MG, 1X/DAY
     Route: 048
     Dates: start: 20120201
  2. TRAZODONE [Concomitant]
     Indication: AFFECTIVE DISORDER
     Dosage: UNK

REACTIONS (1)
  - SINUS DISORDER [None]
